FAERS Safety Report 8802835 (Version 6)
Quarter: 2013Q1

REPORT INFORMATION
  Report Type: Spontaneous
  Country: US (occurrence: US)
  Receive Date: 20120921
  Receipt Date: 20130213
  Transmission Date: 20140127
  Serious: Yes (Hospitalization, Other)
  Sender: FDA-Public Use
  Company Number: US-009507513-1209USA004674

PATIENT
  Sex: Female
  Weight: 92.52 kg

DRUGS (8)
  1. FOSAMAX [Suspect]
     Indication: OSTEOPENIA
     Dosage: 70 MG, QW
     Route: 048
     Dates: start: 20041028, end: 2008
  2. FOSAMAX PLUS D [Suspect]
     Route: 048
  3. ALENDRONATE SODIUM [Suspect]
     Indication: OSTEOPENIA
     Dosage: 70 MG, QW
     Route: 048
     Dates: start: 200806, end: 20110718
  4. BEXTRA (VALDECOXIB) [Concomitant]
     Indication: ARTHRALGIA
  5. VITAMIN D (UNSPECIFIED) [Concomitant]
     Indication: OSTEOPENIA
     Dosage: UNK
     Dates: start: 2000
  6. CALCIUM (UNSPECIFIED) [Concomitant]
     Dosage: 100 MG, UNK
     Dates: start: 2000
  7. VITAMINS (UNSPECIFIED) [Concomitant]
     Dosage: UNK
     Dates: start: 2000
  8. FOSAMAX [Suspect]
     Indication: OSTEOPENIA
     Dosage: 70 MG, UNK
     Route: 048

REACTIONS (19)
  - Femur fracture [Recovered/Resolved]
  - Intramedullary rod insertion [Recovered/Resolved]
  - Blood cholesterol increased [Unknown]
  - Osteoporosis [Unknown]
  - Fall [Unknown]
  - Intervertebral disc degeneration [Unknown]
  - Gastrooesophageal reflux disease [Unknown]
  - Polycythaemia [Unknown]
  - Sleep apnoea syndrome [Unknown]
  - Osteoporosis [Unknown]
  - Cervical spinal stenosis [Unknown]
  - Hyperlipidaemia [Unknown]
  - Haematoma [Unknown]
  - Muscle strain [Unknown]
  - Muscle rupture [Unknown]
  - Blood pressure orthostatic decreased [Recovered/Resolved]
  - Presyncope [Recovered/Resolved]
  - Vomiting [Recovered/Resolved]
  - Adverse drug reaction [Recovered/Resolved]
